FAERS Safety Report 23945019 (Version 13)
Quarter: 2025Q3

REPORT INFORMATION
  Report Type: Report from Study
  Country: US (occurrence: US)
  Receive Date: 20240606
  Receipt Date: 20250904
  Transmission Date: 20251020
  Serious: Yes (Hospitalization, Other)
  Sender: TAKEDA
  Company Number: US-TAKEDA-2024TUS017562

PATIENT
  Age: 73 Year
  Sex: Female
  Weight: 49.9 kg

DRUGS (28)
  1. TEDUGLUTIDE [Suspect]
     Active Substance: TEDUGLUTIDE
     Indication: Short-bowel syndrome
     Dosage: 1.2 MILLIGRAM, QD
  2. TEDUGLUTIDE [Suspect]
     Active Substance: TEDUGLUTIDE
     Dosage: 1.2 MILLIGRAM, QD
  3. TEDUGLUTIDE [Suspect]
     Active Substance: TEDUGLUTIDE
     Dosage: 1.2 MILLIGRAM, QD
  4. TEDUGLUTIDE [Suspect]
     Active Substance: TEDUGLUTIDE
     Dosage: 1.2 MILLIGRAM, QD
  5. TEDUGLUTIDE [Suspect]
     Active Substance: TEDUGLUTIDE
     Dosage: 1.2 MILLIGRAM, QD
  6. TEDUGLUTIDE [Suspect]
     Active Substance: TEDUGLUTIDE
     Dosage: 1.2 MILLIGRAM, QD
  7. TEDUGLUTIDE [Suspect]
     Active Substance: TEDUGLUTIDE
     Dosage: 1.2 MILLIGRAM, QD
  8. TEDUGLUTIDE [Suspect]
     Active Substance: TEDUGLUTIDE
     Dosage: 2.7 MILLIGRAM, QD
  9. TEDUGLUTIDE [Suspect]
     Active Substance: TEDUGLUTIDE
     Dosage: 2.7 MILLIGRAM, QD
  10. TEDUGLUTIDE [Suspect]
     Active Substance: TEDUGLUTIDE
     Dosage: 2.7 MILLIGRAM, QD
  11. TEDUGLUTIDE [Suspect]
     Active Substance: TEDUGLUTIDE
     Dosage: 2.7 MILLIGRAM, QD
  12. TEDUGLUTIDE [Suspect]
     Active Substance: TEDUGLUTIDE
     Dosage: 2.7 MILLIGRAM, QD
  13. PREDNISONE [Suspect]
     Active Substance: PREDNISONE
     Indication: Product used for unknown indication
  14. HUMIRA [Suspect]
     Active Substance: ADALIMUMAB
     Indication: Product used for unknown indication
  15. OMEPRAZOLE [Suspect]
     Active Substance: OMEPRAZOLE
     Indication: Product used for unknown indication
  16. MORPHINE [Suspect]
     Active Substance: MORPHINE
     Indication: Product used for unknown indication
  17. DUPIXENT [Concomitant]
     Active Substance: DUPILUMAB
  18. GABAPENTIN [Concomitant]
     Active Substance: GABAPENTIN
  19. GABAPENTIN [Concomitant]
     Active Substance: GABAPENTIN
  20. MAGNESIUM ASCORBATE [Concomitant]
     Active Substance: MAGNESIUM ASCORBATE
  21. SALINE [Concomitant]
     Active Substance: SODIUM CHLORIDE
  22. IMODIUM [Concomitant]
     Active Substance: LOPERAMIDE HYDROCHLORIDE
  23. INDOMETHACIN [Concomitant]
     Active Substance: INDOMETHACIN
  24. VITAMIN B12 [Concomitant]
     Active Substance: CYANOCOBALAMIN
  25. TYLENOL EXTRA STRENGTH [Concomitant]
     Active Substance: ACETAMINOPHEN
  26. ZOLPIDEM TARTRATE [Concomitant]
     Active Substance: ZOLPIDEM TARTRATE
  27. INSULIN NOS [Concomitant]
     Active Substance: INSULIN NOS
     Dosage: 1.2 MILLIGRAM, QD
  28. AMITRIPTYLINE HYDROCHLORIDE [Concomitant]
     Active Substance: AMITRIPTYLINE HYDROCHLORIDE

REACTIONS (36)
  - Renal disorder [Unknown]
  - Nephrolithiasis [Unknown]
  - Weight increased [Recovered/Resolved]
  - Blood pressure increased [Unknown]
  - Malaise [Unknown]
  - Feeling abnormal [Unknown]
  - Multiple allergies [Not Recovered/Not Resolved]
  - Blood magnesium decreased [Not Recovered/Not Resolved]
  - Diarrhoea [Not Recovered/Not Resolved]
  - Muscle spasms [Unknown]
  - Eczema [Not Recovered/Not Resolved]
  - Drug hypersensitivity [Unknown]
  - Dermatitis contact [Unknown]
  - Back pain [Unknown]
  - Fatigue [Unknown]
  - Product dose omission in error [Not Recovered/Not Resolved]
  - Inappropriate schedule of product administration [Recovered/Resolved]
  - Product dose omission issue [Unknown]
  - Herpes zoster [Not Recovered/Not Resolved]
  - Weight decreased [Not Recovered/Not Resolved]
  - Loss of personal independence in daily activities [Not Recovered/Not Resolved]
  - Bowel movement irregularity [Unknown]
  - Dehydration [Unknown]
  - Blood iron decreased [Not Recovered/Not Resolved]
  - Vitamin B12 decreased [Not Recovered/Not Resolved]
  - Nicotinamide decreased [Not Recovered/Not Resolved]
  - Gout [Unknown]
  - Inflammation [Unknown]
  - Blood glucose increased [Unknown]
  - Arthralgia [Unknown]
  - Nasopharyngitis [Not Recovered/Not Resolved]
  - Vomiting [Unknown]
  - Nausea [Unknown]
  - Flatulence [Unknown]
  - Abdominal pain [Recovered/Resolved]
  - Decreased appetite [Unknown]

NARRATIVE: CASE EVENT DATE: 20240626
